FAERS Safety Report 5118144-8 (Version None)
Quarter: 2006Q4

REPORT INFORMATION
  Report Type: 
  Country: None (occurrence: None)
  Receive Date: 20061002
  Receipt Date: 20060920
  Transmission Date: 20070319
  Serious: Yes (Other)
  Sender: FDA-Public Use
  Company Number: DE-JNJFOC-20060904517

PATIENT
  Age: 58 Year
  Sex: Male

DRUGS (1)
  1. TAVANIC [Suspect]
     Indication: SUBCUTANEOUS ABSCESS
     Route: 065

REACTIONS (1)
  - HEARING IMPAIRED [None]
